FAERS Safety Report 19071370 (Version 1)
Quarter: 2021Q1

REPORT INFORMATION
  Report Type: Spontaneous
  Country: DE (occurrence: DE)
  Receive Date: 20210330
  Receipt Date: 20210330
  Transmission Date: 20210420
  Serious: Yes (Life-Threatening, Hospitalization)
  Sender: FDA-Public Use
  Company Number: DE-TEVA-2021-DE-1894475

PATIENT
  Age: 65 Year
  Sex: Male

DRUGS (5)
  1. MCP [Concomitant]
     Active Substance: METOCLOPRAMIDE HYDROCHLORIDE
     Dosage: 100 MG, REQUIREMENT MAX 3 TIMES A DAY
  2. ZOFRAN [Concomitant]
     Active Substance: ONDANSETRON HYDROCHLORIDE
     Dosage: 8 MG, REQUIREMENT MAX 2X DAILY
  3. ETOPOSIDE. [Suspect]
     Active Substance: ETOPOSIDE
     Dosage: LAST GIFT ON 06122020
     Route: 042
  4. CARBOPLATIN. [Suspect]
     Active Substance: CARBOPLATIN
     Dosage: LAST GIFT ON 04122020
     Route: 042
  5. CYANOCOBALAMIN. [Concomitant]
     Active Substance: CYANOCOBALAMIN
     Dosage: 100 UG / EVERY 3 MONTHS, 1?0?0?0
     Route: 030

REACTIONS (7)
  - Pulmonary sepsis [Unknown]
  - Syncope [Unknown]
  - Asthenia [Unknown]
  - Nausea [Unknown]
  - Dizziness [Unknown]
  - Neutropenia [Unknown]
  - Chills [Unknown]
